FAERS Safety Report 4884995-8 (Version None)
Quarter: 2006Q1

REPORT INFORMATION
  Report Type: 
  Country: None (occurrence: None)
  Receive Date: 20060119
  Receipt Date: 20050406
  Transmission Date: 20060701
  Serious: Yes (Hospitalization)
  Sender: FDA-Public Use
  Company Number: US-MERCK-0504USA01032

PATIENT
  Age: 43 Year
  Sex: Male
  Weight: 85 kg

DRUGS (18)
  1. VIOXX [Suspect]
     Indication: RHEUMATOID ARTHRITIS
     Route: 048
     Dates: start: 20010101, end: 20040901
  2. HYDROCODONE BITARTRATE + ACETAMINOPHEN [Concomitant]
     Route: 065
  3. NEXIUM [Concomitant]
     Route: 065
  4. VICODIN [Concomitant]
     Route: 065
  5. ZANTAC [Concomitant]
     Route: 065
  6. RESTORIL [Concomitant]
     Route: 065
  7. PENICILLIN (UNSPECIFIED) [Concomitant]
     Route: 065
  8. TYLENOL W/ CODEINE [Concomitant]
     Route: 065
  9. ELAVIL [Concomitant]
     Route: 065
  10. PREDNISONE [Concomitant]
     Route: 065
  11. AUGMENTIN '125' [Concomitant]
     Route: 065
  12. NAPROSYN [Concomitant]
     Route: 065
  13. PREVACID [Concomitant]
     Route: 065
  14. IMITREX [Concomitant]
     Route: 065
  15. ULTRAM [Concomitant]
     Route: 065
  16. BUTORPHANOL [Concomitant]
     Route: 065
  17. HYDROXYCHLOROQUINE SULFATE [Concomitant]
     Route: 065
  18. AMOXICILLIN [Concomitant]
     Route: 065

REACTIONS (3)
  - CHEST PAIN [None]
  - GASTROINTESTINAL HAEMORRHAGE [None]
  - MYOCARDIAL INFARCTION [None]
